FAERS Safety Report 8392253-2 (Version None)
Quarter: 2012Q2

REPORT INFORMATION
  Report Type: 
  Country: None (occurrence: None)
  Receive Date: 20120529
  Receipt Date: 20120514
  Transmission Date: 20120825
  Serious: Yes (Other)
  Sender: FDA-Public Use
  Company Number: US-ROCHE-316429

PATIENT
  Age: 76 Year
  Sex: Male

DRUGS (1)
  1. ROCEPHIN [Suspect]
     Indication: PNEUMONIA
     Route: 065

REACTIONS (2)
  - RENAL FAILURE [None]
  - HAEMOLYTIC ANAEMIA [None]
